FAERS Safety Report 15715515 (Version 1)
Quarter: 2018Q4

REPORT INFORMATION
  Report Type: Report from Study
  Country: JP (occurrence: JP)
  Receive Date: 20181212
  Receipt Date: 20181212
  Transmission Date: 20190205
  Serious: Yes (Hospitalization, Other)
  Sender: FDA-Public Use
  Company Number: JP-BRISTOL-MYERS SQUIBB COMPANY-BMS-2018-116048

PATIENT
  Age: 66 Year
  Sex: Male
  Weight: 61 kg

DRUGS (12)
  1. OXALIPLATIN. [Suspect]
     Active Substance: OXALIPLATIN
     Indication: GASTRIC CANCER
     Dosage: UNK
     Route: 041
     Dates: start: 20181019, end: 20181130
  2. CAPECITABINE. [Suspect]
     Active Substance: CAPECITABINE
     Indication: GASTRIC CANCER
     Dosage: UNK
     Route: 048
     Dates: start: 20181019
  3. EMEND [Concomitant]
     Active Substance: APREPITANT
     Indication: PRODUCT USED FOR UNKNOWN INDICATION
     Dosage: 80 MG, EVERYDAY
     Route: 048
     Dates: start: 20181020
  4. EMEND [Concomitant]
     Active Substance: APREPITANT
     Indication: PROPHYLAXIS OF NAUSEA AND VOMITING
     Dosage: 125 MG, EVERYDAY
     Route: 048
     Dates: start: 20181019, end: 20181019
  5. DECADRON                           /00016002/ [Concomitant]
     Active Substance: DEXAMETHASONE
     Indication: PROPHYLAXIS OF NAUSEA AND VOMITING
     Dosage: 2 MG, Q12H
     Route: 048
     Dates: start: 20181020
  6. HACHIAZULE                         /00523101/ [Concomitant]
     Indication: STOMATITIS
     Dosage: 1 DF, PRN
     Route: 048
     Dates: start: 20181109
  7. NIFEDIPINE. [Concomitant]
     Active Substance: NIFEDIPINE
     Indication: HYPERTENSION
     Dosage: 20 MG, QD
     Route: 048
     Dates: start: 20181002
  8. PITAVASTATIN CA KYORIN [Concomitant]
     Indication: HYPERLIPIDAEMIA
     Dosage: 1 MG, QD
     Route: 048
  9. NIVOLUMAB [Suspect]
     Active Substance: NIVOLUMAB
     Indication: GASTRIC CANCER
     Dosage: 1 DF, UNK
     Route: 041
     Dates: start: 20181019, end: 20181130
  10. GOSHAJINKIGAN [Concomitant]
     Active Substance: HERBALS
     Indication: PROPHYLAXIS
     Dosage: 2.5 G, Q8H
     Route: 048
     Dates: start: 20181019
  11. SPACIOL [Concomitant]
     Indication: HYPERTENSION
     Dosage: 5 MG, QD
     Route: 048
  12. MAGNESIUM OXIDE. [Concomitant]
     Active Substance: MAGNESIUM OXIDE
     Indication: CONSTIPATION
     Dosage: 500 MG, Q8H
     Route: 048
     Dates: start: 20181023

REACTIONS (3)
  - Colitis [Not Recovered/Not Resolved]
  - Large intestine perforation [Not Recovered/Not Resolved]
  - Peritonitis [Not Recovered/Not Resolved]

NARRATIVE: CASE EVENT DATE: 20181202
